FAERS Safety Report 10739418 (Version 5)
Quarter: 2015Q3

REPORT INFORMATION
  Report Type: Spontaneous
  Country: US (occurrence: US)
  Receive Date: 20150126
  Receipt Date: 20150810
  Transmission Date: 20151125
  Serious: Yes (Hospitalization, Other)
  Sender: FDA-Public Use
  Company Number: US-GLAXOSMITHKLINE-US2015GSK009708

PATIENT
  Age: 79 Year
  Sex: Female

DRUGS (4)
  1. PROPAFENONE HYDROCHLORIDE. [Suspect]
     Active Substance: PROPAFENONE HYDROCHLORIDE
     Indication: ATRIAL FIBRILLATION
     Dosage: 325 MG, UNK
     Dates: start: 2011
  2. RYTHMOL SR [Suspect]
     Active Substance: PROPAFENONE HYDROCHLORIDE
     Indication: ATRIAL FIBRILLATION
     Dosage: 325 MG, QD
     Route: 048
     Dates: start: 201305, end: 20150325
  3. LASIX [Concomitant]
     Active Substance: FUROSEMIDE
  4. ASPIRIN (BABY) [Concomitant]
     Active Substance: ASPIRIN

REACTIONS (8)
  - Blood pressure abnormal [Unknown]
  - Hospitalisation [Unknown]
  - Cardiac pacemaker insertion [Recovered/Resolved]
  - Loss of consciousness [Recovered/Resolved]
  - Drug ineffective [Unknown]
  - Syncope [Unknown]
  - Hypertension [Recovered/Resolved]
  - Peripheral swelling [Recovered/Resolved]

NARRATIVE: CASE EVENT DATE: 201411
